FAERS Safety Report 9088341 (Version 2)
Quarter: 2015Q3

REPORT INFORMATION
  Report Type: Report from Study
  Country: US (occurrence: US)
  Receive Date: 20130131
  Receipt Date: 20150826
  Transmission Date: 20151125
  Serious: Yes (Death, Hospitalization, Other)
  Sender: FDA-Public Use
  Company Number: US-ASTELLAS-2013US001077

PATIENT
  Age: 65 Year
  Sex: Female

DRUGS (52)
  1. ERLOTINIB [Suspect]
     Active Substance: ERLOTINIB
     Indication: METASTASES TO LIVER
  2. HYZAAR [Concomitant]
     Active Substance: HYDROCHLOROTHIAZIDE\LOSARTAN POTASSIUM
     Indication: PRODUCT USED FOR UNKNOWN INDICATION
     Dosage: 100/25,UNK, ONCE DAILY
     Route: 048
  3. COUMADIN [Concomitant]
     Active Substance: WARFARIN SODIUM
     Indication: VENOUS THROMBOSIS
     Route: 048
  4. NEXIUM [Concomitant]
     Active Substance: ESOMEPRAZOLE MAGNESIUM
     Indication: PRODUCT USED FOR UNKNOWN INDICATION
     Route: 048
  5. LOVENOX [Concomitant]
     Active Substance: ENOXAPARIN SODIUM
     Indication: PRODUCT USED FOR UNKNOWN INDICATION
     Dosage: 40 MG, EVERY 24 HOURS
     Route: 058
  6. ABRAXANE [Concomitant]
     Active Substance: PACLITAXEL
     Indication: PRODUCT USED FOR UNKNOWN INDICATION
     Route: 042
     Dates: start: 200607
  7. PRILOSEC [Concomitant]
     Active Substance: OMEPRAZOLE MAGNESIUM
     Indication: PRODUCT USED FOR UNKNOWN INDICATION
     Route: 065
  8. HUMALOG [Concomitant]
     Active Substance: INSULIN LISPRO
     Indication: PRODUCT USED FOR UNKNOWN INDICATION
     Route: 058
  9. NITROGLYCERIN. [Concomitant]
     Active Substance: NITROGLYCERIN
     Indication: PRODUCT USED FOR UNKNOWN INDICATION
     Route: 058
  10. ERLOTINIB [Suspect]
     Active Substance: ERLOTINIB
     Indication: BREAST CANCER FEMALE
     Route: 048
  11. ZOMETA [Concomitant]
     Active Substance: ZOLEDRONIC ACID
     Indication: PRODUCT USED FOR UNKNOWN INDICATION
     Dosage: UNK UNK, UNKNOWN FREQ.
     Route: 042
  12. AVASTIN [Concomitant]
     Active Substance: BEVACIZUMAB
     Indication: PRODUCT USED FOR UNKNOWN INDICATION
     Route: 041
  13. EPOGEN [Concomitant]
     Active Substance: ERYTHROPOIETIN
     Route: 058
  14. GLUCOVANCE [Concomitant]
     Active Substance: GLYBURIDE\METFORMIN HYDROCHLORIDE
     Indication: PRODUCT USED FOR UNKNOWN INDICATION
     Route: 048
  15. QUININE SULFATE. [Concomitant]
     Active Substance: QUININE SULFATE
     Indication: MUSCLE SPASMS
     Route: 048
  16. SINGULAIR [Concomitant]
     Active Substance: MONTELUKAST SODIUM
     Indication: PRODUCT USED FOR UNKNOWN INDICATION
     Route: 065
  17. BENADRYL [Concomitant]
     Active Substance: DIPHENHYDRAMINE HYDROCHLORIDE
     Indication: PRODUCT USED FOR UNKNOWN INDICATION
     Route: 042
  18. LASIX [Concomitant]
     Active Substance: FUROSEMIDE
     Indication: PRODUCT USED FOR UNKNOWN INDICATION
     Route: 048
  19. ISOSORBIDE MONONITRATE. [Concomitant]
     Active Substance: ISOSORBIDE MONONITRATE
     Indication: PRODUCT USED FOR UNKNOWN INDICATION
     Route: 048
  20. MORPHINE SULFATE. [Concomitant]
     Active Substance: MORPHINE SULFATE
     Indication: PAIN
     Dosage: 2 MG, EVERY 2 HOURS
     Route: 042
  21. PHENERGAN [Concomitant]
     Active Substance: PROMETHAZINE HYDROCHLORIDE
     Indication: NAUSEA
     Route: 042
  22. COMPAZINE [Concomitant]
     Active Substance: PROCHLORPERAZINE MALEATE
     Dosage: 10 MG, ERY 4 HOURS
     Route: 048
  23. TYLENOL [Concomitant]
     Active Substance: ACETAMINOPHEN
     Indication: MUSCULOSKELETAL DISCOMFORT
     Dosage: 325-650 MG EVERY 4 HOURS, AS NEEDED
     Route: 048
  24. XOPENEX [Concomitant]
     Active Substance: LEVALBUTEROL HYDROCHLORIDE
     Indication: ASTHMA
     Route: 065
  25. IMDUR [Concomitant]
     Active Substance: ISOSORBIDE MONONITRATE
     Indication: PRODUCT USED FOR UNKNOWN INDICATION
     Route: 048
  26. IMODIUM [Concomitant]
     Active Substance: LOPERAMIDE HYDROCHLORIDE
     Indication: DIARRHOEA
     Dosage: UNK UNK, AS NEEDED
     Route: 065
  27. COMPAZINE [Concomitant]
     Active Substance: PROCHLORPERAZINE MALEATE
     Indication: NAUSEA
     Dosage: 20 MG, EVERY 4 HOURS
     Route: 048
  28. TYLENOL [Concomitant]
     Active Substance: ACETAMINOPHEN
     Indication: BACK PAIN
  29. PAREGORIC                          /00036301/ [Concomitant]
     Indication: DIARRHOEA
     Dosage: UNK UNK, UNKNOWN FREQ.
     Route: 065
  30. OMEPRAZOLE. [Concomitant]
     Active Substance: OMEPRAZOLE
     Indication: PRODUCT USED FOR UNKNOWN INDICATION
     Route: 048
  31. HERCEPTIN [Suspect]
     Active Substance: TRASTUZUMAB
     Indication: BREAST CANCER FEMALE
     Route: 042
     Dates: start: 20041216, end: 2007
  32. HERCEPTIN [Suspect]
     Active Substance: TRASTUZUMAB
     Route: 042
  33. NAVELBINE [Concomitant]
     Active Substance: VINORELBINE TARTRATE
     Dosage: UNK, UNKNOWN FREQ.
     Route: 065
     Dates: start: 20060614
  34. NITROSTAT [Concomitant]
     Active Substance: NITROGLYCERIN
     Indication: PRODUCT USED FOR UNKNOWN INDICATION
     Dosage: 0.4 MG, EVERY 5 MINUTES, AS NEEDED
     Route: 065
  35. NAVELBINE [Concomitant]
     Active Substance: VINORELBINE TARTRATE
     Dosage: UNK, UNKNOWN FREQ.
     Route: 065
     Dates: start: 200607
  36. EPOGEN [Concomitant]
     Active Substance: ERYTHROPOIETIN
     Indication: ANAEMIA
     Route: 058
  37. PERCOCET                           /00446701/ [Concomitant]
     Active Substance: ACETAMINOPHEN\OXYCODONE HYDROCHLORIDE\OXYCODONE TEREPHTHALATE
     Indication: BACK PAIN
     Dosage: 5 MG, EVERY 4 HOURS
  38. CELEBREX [Concomitant]
     Active Substance: CELECOXIB
     Indication: ARTHRALGIA
     Route: 048
  39. ATORVASTATIN [Concomitant]
     Active Substance: ATORVASTATIN
     Indication: PRODUCT USED FOR UNKNOWN INDICATION
     Route: 065
  40. ALBUTEROL                          /00139501/ [Concomitant]
     Active Substance: ALBUTEROL
     Indication: WHEEZING
     Dosage: 0.083 %, AS NEEDED
     Route: 065
  41. ASPIRIN. [Concomitant]
     Active Substance: ASPIRIN
     Indication: PRODUCT USED FOR UNKNOWN INDICATION
     Route: 048
  42. SODIUM CHLORIDE. [Concomitant]
     Active Substance: SODIUM CHLORIDE
     Indication: PRODUCT USED FOR UNKNOWN INDICATION
     Route: 042
  43. KYTRIL [Concomitant]
     Active Substance: GRANISETRON HYDROCHLORIDE
     Indication: PRODUCT USED FOR UNKNOWN INDICATION
     Dosage: UNK UNK, UNKNOWN FREQ.
     Route: 042
  44. MAG-OX [Concomitant]
     Active Substance: MAGNESIUM OXIDE
     Indication: PRODUCT USED FOR UNKNOWN INDICATION
     Route: 048
  45. SEPTRA DS [Suspect]
     Active Substance: SULFAMETHOXAZOLE\TRIMETHOPRIM
     Indication: PRODUCT USED FOR UNKNOWN INDICATION
     Dosage: UNK UNK, TWICE DAILY
     Route: 065
  46. TAXOTERE [Concomitant]
     Active Substance: DOCETAXEL
     Indication: PRODUCT USED FOR UNKNOWN INDICATION
     Dosage: UNK, UNKNOWN FREQ.
     Route: 042
  47. NAVELBINE [Concomitant]
     Active Substance: VINORELBINE TARTRATE
     Indication: PRODUCT USED FOR UNKNOWN INDICATION
     Dosage: UNK, UNKNOWN FREQ.
     Route: 065
     Dates: end: 20060503
  48. GEMZAR [Concomitant]
     Active Substance: GEMCITABINE HYDROCHLORIDE
     Indication: PRODUCT USED FOR UNKNOWN INDICATION
     Dosage: UNK, UNKNOWN FREQ.
     Route: 065
     Dates: start: 200607, end: 200609
  49. TYLENOL [Concomitant]
     Active Substance: ACETAMINOPHEN
     Indication: PYREXIA
  50. MYLANTA                            /00036701/ [Concomitant]
     Indication: DYSPEPSIA
     Route: 048
  51. PACLITAXEL. [Concomitant]
     Active Substance: PACLITAXEL
     Indication: PRODUCT USED FOR UNKNOWN INDICATION
     Route: 042
  52. NITRO-BID [Concomitant]
     Active Substance: NITROGLYCERIN
     Indication: PRODUCT USED FOR UNKNOWN INDICATION
     Dosage: 0.5 INCH, UNK, EVERY 6 HOURS

REACTIONS (24)
  - Weight fluctuation [Unknown]
  - Back pain [Unknown]
  - Fatigue [Unknown]
  - Neoplasm progression [Unknown]
  - Vomiting [Unknown]
  - Off label use [Unknown]
  - Pleural effusion [Recovered/Resolved]
  - Arthralgia [Unknown]
  - Sinusitis [Unknown]
  - Ventricular hypokinesia [Unknown]
  - Osteosclerosis [Unknown]
  - Cataract [Unknown]
  - Rales [Unknown]
  - Tachycardia [Unknown]
  - Oedema peripheral [Recovered/Resolved]
  - Nausea [Recovered/Resolved]
  - Oesophageal spasm [Unknown]
  - Nocturia [Unknown]
  - Diarrhoea [Unknown]
  - Death [Fatal]
  - Cardiac failure congestive [Recovered/Resolved]
  - Anaemia [Recovered/Resolved]
  - Infection [Unknown]
  - Influenza [Unknown]

NARRATIVE: CASE EVENT DATE: 20041223
